FAERS Safety Report 5324386-9 (Version None)
Quarter: 2007Q2

REPORT INFORMATION
  Report Type: 
  Country: None (occurrence: None)
  Receive Date: 20070514
  Receipt Date: 20070503
  Transmission Date: 20071010
  Serious: Yes (Hospitalization, Other)
  Sender: FDA-Public Use
  Company Number: US-PFIZER INC-2006141421

PATIENT
  Sex: Female
  Weight: 69.9 kg

DRUGS (3)
  1. CELEBREX [Suspect]
     Indication: NECK PAIN
     Route: 048
  2. CELEBREX [Suspect]
     Indication: ARTHRITIS
  3. CELEBREX [Suspect]
     Indication: HYPOAESTHESIA

REACTIONS (5)
  - ERYTHEMA MULTIFORME [None]
  - FATIGUE [None]
  - SCAR [None]
  - STEVENS-JOHNSON SYNDROME [None]
  - VITREOUS DETACHMENT [None]
